FAERS Safety Report 10185654 (Version 1)
Quarter: 2014Q2

REPORT INFORMATION
  Report Type: Report from Study
  Country: DE (occurrence: DE)
  Receive Date: 20140521
  Receipt Date: 20140521
  Transmission Date: 20141212
  Serious: Yes (Hospitalization, Other)
  Sender: FDA-Public Use
  Company Number: DE-BAXTER-2014BAX023915

PATIENT
  Sex: Male

DRUGS (1)
  1. ADVATE  250 I.E. [Suspect]
     Indication: FACTOR VIII DEFICIENCY
     Route: 042

REACTIONS (1)
  - Macular degeneration [Unknown]
